FAERS Safety Report 8216542-7 (Version None)
Quarter: 2012Q1

REPORT INFORMATION
  Report Type: 
  Country: None (occurrence: None)
  Receive Date: 20120316
  Receipt Date: 20120313
  Transmission Date: 20120608
  Serious: Yes (Hospitalization)
  Sender: FDA-Public Use
  Company Number: US-B.I. PHARMACEUTICALS,INC./RIDGEFIELD-2012-BP-04834BP

PATIENT
  Sex: Male

DRUGS (2)
  1. PRADAXA [Suspect]
     Route: 048
  2. PRADAXA [Suspect]
     Route: 048
     Dates: start: 20110101

REACTIONS (1)
  - PROCEDURAL HAEMORRHAGE [None]
